FAERS Safety Report 7501781-0 (Version None)
Quarter: 2011Q2

REPORT INFORMATION
  Report Type: 
  Country: None (occurrence: None)
  Receive Date: 20110523
  Receipt Date: 20110523
  Transmission Date: 20111010
  Serious: Yes (Other)
  Sender: FDA-Public Use
  Company Number: None

PATIENT
  Age: 45 Year
  Sex: Female
  Weight: 67.1324 kg

DRUGS (1)
  1. SPIRONOLACTONE [Suspect]
     Indication: ACNE
     Dosage: 100 MG 1 DAILY PO
     Route: 048
     Dates: start: 20110401, end: 20110518

REACTIONS (8)
  - OFF LABEL USE [None]
  - POLLAKIURIA [None]
  - DEPRESSION [None]
  - CRYING [None]
  - DRY SKIN [None]
  - THIRST [None]
  - MENORRHAGIA [None]
  - POLYMENORRHOEA [None]
